FAERS Safety Report 10879594 (Version 3)
Quarter: 2015Q2

REPORT INFORMATION
  Report Type: Spontaneous
  Country: US (occurrence: US)
  Receive Date: 20150302
  Receipt Date: 20150427
  Transmission Date: 20150821
  Serious: Yes (Other)
  Sender: FDA-Public Use
  Company Number: US-CELGENE-USA-2015024368

PATIENT
  Age: 63 Year
  Sex: Male

DRUGS (2)
  1. AFREZZA [Concomitant]
     Active Substance: INSULIN HUMAN
     Indication: PRODUCT USED FOR UNKNOWN INDICATION
     Route: 065
  2. OTEZLA [Suspect]
     Active Substance: APREMILAST
     Indication: PSORIASIS
     Dosage: 60 MILLIGRAM
     Route: 048
     Dates: start: 201502

REACTIONS (2)
  - Colitis ulcerative [Unknown]
  - Psoriasis [Unknown]

NARRATIVE: CASE EVENT DATE: 20150219
